FAERS Safety Report 9163790 (Version 1)
Quarter: 2013Q1

REPORT INFORMATION
  Report Type: Spontaneous
  Country: DE (occurrence: DE)
  Receive Date: 20130314
  Receipt Date: 20130314
  Transmission Date: 20140127
  Serious: Yes (Congenital Anomaly)
  Sender: FDA-Public Use
  Company Number: DE-ASTRAZENECA-2013SE15255

PATIENT
  Age: 0 Week
  Sex: 0
  Weight: .7 kg

DRUGS (6)
  1. ATACAND [Suspect]
     Indication: HYPERTENSION
     Route: 064
     Dates: start: 20111106, end: 20111211
  2. METOPROLOL [Concomitant]
     Indication: HYPERTENSION
     Route: 064
     Dates: start: 20111106
  3. METOPROLOL [Concomitant]
     Indication: HYPERTENSION
     Route: 064
     Dates: end: 20120421
  4. DEKRISTOL [Concomitant]
     Indication: VITAMIN D DEFICIENCY
     Dosage: 20000 IE/WK
     Route: 064
     Dates: start: 20111106, end: 20120421
  5. FOLIO FORTE [Concomitant]
     Indication: PROPHYLAXIS OF NEURAL TUBE DEFECT
     Dosage: 0.8 MG DAILY 5-12 GESTATIONAL WEEK
     Route: 064
  6. CYTOTEC [Concomitant]
     Indication: LABOUR INDUCTION
     Route: 064
     Dates: start: 20120418, end: 20120419

REACTIONS (1)
  - Congenital central nervous system anomaly [Not Recovered/Not Resolved]
